FAERS Safety Report 11855777 (Version 1)
Quarter: 2015Q4

REPORT INFORMATION
  Report Type: Spontaneous
  Country: IR (occurrence: IR)
  Receive Date: 20151221
  Receipt Date: 20151221
  Transmission Date: 20160305
  Serious: Yes (Death, Hospitalization)
  Sender: FDA-Public Use
  Company Number: IR-IPCA LABORATORIES LIMITED-IPC201512-000859

PATIENT
  Age: 25 Year
  Sex: Male

DRUGS (1)
  1. WARFARIN [Suspect]
     Active Substance: WARFARIN
     Indication: CONGENITAL AORTIC STENOSIS

REACTIONS (3)
  - Cardio-respiratory arrest [Unknown]
  - Retroperitoneal haematoma [Unknown]
  - Hypovolaemic shock [Fatal]
